FAERS Safety Report 6589908-9 (Version None)
Quarter: 2010Q1

REPORT INFORMATION
  Report Type: 
  Country: None (occurrence: None)
  Receive Date: 20100212
  Receipt Date: 20100131
  Transmission Date: 20100710
  Serious: Yes (Life-Threatening)
  Sender: FDA-Public Use
  Company Number: 2010-0356

PATIENT
  Sex: Male

DRUGS (2)
  1. APOKYN [Suspect]
     Indication: PARKINSON'S DISEASE
     Dosage: 0.2 MG, SUBCUTANEOUS, 0.4 MG, SUBCUTANEOUS
     Route: 058
     Dates: start: 20100130, end: 20100130
  2. APOKYN [Suspect]
     Indication: PARKINSON'S DISEASE
     Dosage: 0.2 MG, SUBCUTANEOUS, 0.4 MG, SUBCUTANEOUS
     Route: 058
     Dates: start: 20100130, end: 20100130

REACTIONS (6)
  - BLOOD PRESSURE DECREASED [None]
  - DEPRESSED LEVEL OF CONSCIOUSNESS [None]
  - DRUG INEFFECTIVE [None]
  - DRUG INTOLERANCE [None]
  - DYSSTASIA [None]
  - HALLUCINATION [None]
